FAERS Safety Report 10728968 (Version 1)
Quarter: 2015Q1

REPORT INFORMATION
  Report Type: Spontaneous
  Country: GB (occurrence: None)
  Receive Date: 20150120
  Receipt Date: 20150120
  Transmission Date: 20150721
  Serious: Yes (Hospitalization, Disabling, Other)
  Sender: FDA-Public Use
  Company Number: None

PATIENT
  Age: 36 Year
  Sex: Female
  Weight: 63.5 kg

DRUGS (5)
  1. AMITRIPTYLINE [Concomitant]
     Active Substance: AMITRIPTYLINE
  2. CIPROFLAXCIN [Suspect]
     Active Substance: CIPROFLOXACIN
     Indication: CYSTITIS
     Route: 048
     Dates: start: 20140505, end: 20150117
  3. LORAZEPAM. [Concomitant]
     Active Substance: LORAZEPAM
  4. CIPROFLAXCIN [Suspect]
     Active Substance: CIPROFLOXACIN
     Indication: NEPHROLITHIASIS
     Route: 048
     Dates: start: 20140505, end: 20150117
  5. DULOXETINE [Concomitant]
     Active Substance: DULOXETINE

REACTIONS (2)
  - Tendon disorder [None]
  - Arthralgia [None]

NARRATIVE: CASE EVENT DATE: 20150117
